FAERS Safety Report 8977238 (Version 2)
Quarter: 2013Q1

REPORT INFORMATION
  Report Type: Spontaneous
  Country: US (occurrence: US)
  Receive Date: 20121220
  Receipt Date: 20130211
  Transmission Date: 20140127
  Serious: Yes (Death)
  Sender: FDA-Public Use
  Company Number: US-ELI_LILLY_AND_COMPANY-US201212004410

PATIENT
  Age: 74 Year
  Sex: Male
  Weight: 72.5 kg

DRUGS (4)
  1. ALIMTA [Suspect]
     Indication: NON-SMALL CELL LUNG CANCER
     Dosage: UNK
     Route: 042
     Dates: start: 20120801, end: 20120914
  2. VITAMIN B12 [Concomitant]
     Dosage: UNK
     Route: 048
     Dates: start: 20120726
  3. FOLIC ACID [Concomitant]
     Dosage: UNK
     Route: 048
     Dates: start: 20120726
  4. CORTICOSTEROID NOS [Concomitant]
     Dosage: 4 MG, BID
     Dates: start: 20120726

REACTIONS (5)
  - Pulmonary embolism [Fatal]
  - Dehydration [Not Recovered/Not Resolved]
  - Abasia [Unknown]
  - Urinary incontinence [Unknown]
  - Constipation [Recovered/Resolved]
